FAERS Safety Report 8248434-1 (Version None)
Quarter: 2012Q1

REPORT INFORMATION
  Report Type: 
  Country: None (occurrence: None)
  Receive Date: 20120330
  Receipt Date: 20120316
  Transmission Date: 20120608
  Serious: Yes (Death)
  Sender: FDA-Public Use
  Company Number: GB-BAXTER-2012BAX000023

PATIENT
  Age: 6 Month
  Sex: Female

DRUGS (5)
  1. SODIUM CHLORIDE 0.9% INTRAVENOUS INFUSION BP [Suspect]
     Route: 042
  2. POTASSIUM CHLORIDE [Suspect]
     Indication: ELECTROLYTE IMBALANCE
     Route: 042
  3. CALCIUM CHLORIDE [Suspect]
     Indication: CALCIUM DEFICIENCY
     Dosage: 1MMOL/L (14.7%)
     Route: 042
  4. MAGNESIUM SULFATE [Suspect]
     Indication: MAGNESIUM DEFICIENCY
     Route: 042
  5. SODIUM GLYCERPHOSPHATE [Suspect]
     Route: 042

REACTIONS (3)
  - DYSPNOEA [None]
  - UNRESPONSIVE TO STIMULI [None]
  - CARDIAC ARREST [None]
